FAERS Safety Report 4376310-3 (Version None)
Quarter: 2004Q2

REPORT INFORMATION
  Report Type: 
  Country: None (occurrence: None)
  Receive Date: 20040608
  Receipt Date: 20030414
  Transmission Date: 20050107
  Serious: Yes (Other)
  Sender: FDA-Public Use
  Company Number: 200311240BCC

PATIENT
  Age: 64 Year
  Sex: Male
  Weight: 79.3795 kg

DRUGS (2)
  1. ALEVE [Suspect]
     Indication: PAIN
     Dosage: 220 MG, QD, ORAL
     Route: 048
     Dates: start: 20030411, end: 20030412
  2. THRYOID MEDICATION [Concomitant]

REACTIONS (6)
  - ANGIONEUROTIC OEDEMA [None]
  - ERYTHEMA [None]
  - OEDEMA PERIPHERAL [None]
  - SWELLING [None]
  - SWELLING FACE [None]
  - THROAT TIGHTNESS [None]
